FAERS Safety Report 8440161-0 (Version None)
Quarter: 2012Q2

REPORT INFORMATION
  Report Type: 
  Country: None (occurrence: None)
  Receive Date: 20120615
  Receipt Date: 20120531
  Transmission Date: 20120825
  Serious: Yes (Hospitalization)
  Sender: FDA-Public Use
  Company Number: FR-ROCHE-1025281

PATIENT
  Age: 53 Year
  Sex: Male

DRUGS (3)
  1. ADRENALIN IN OIL INJ [Suspect]
     Indication: VENTRICULAR FIBRILLATION
  2. ACTIVASE [Suspect]
     Indication: PULMONARY EMBOLISM
  3. ADRENALIN IN OIL INJ [Suspect]
     Indication: CARDIAC ARREST

REACTIONS (4)
  - SKIN ULCER [None]
  - BONE DISORDER [None]
  - IMPLANT SITE NECROSIS [None]
  - INJECTION SITE NECROSIS [None]
